FAERS Safety Report 4825121-0 (Version None)
Quarter: 2005Q4

REPORT INFORMATION
  Report Type: 
  Country: None (occurrence: None)
  Receive Date: 20051109
  Receipt Date: 20051109
  Transmission Date: 20060501
  Serious: Yes (Other)
  Sender: FDA-Public Use
  Company Number: None

PATIENT
  Age: 86 Year
  Sex: Female
  Weight: 70 kg

DRUGS (4)
  1. CIPROFLOXACIN [Suspect]
     Indication: URINARY TRACT INFECTION
     Dosage: 500MG PO BID X 7 DAYS
     Route: 048
     Dates: start: 20050513, end: 20050517
  2. ATENOLOL [Concomitant]
  3. LEVOTHYROXINE [Concomitant]
  4. ASPIRIN [Concomitant]

REACTIONS (1)
  - MYALGIA [None]
